FAERS Safety Report 22112404 (Version 4)
Quarter: 2023Q2

REPORT INFORMATION
  Report Type: Spontaneous
  Country: US (occurrence: US)
  Receive Date: 20230319
  Receipt Date: 20230417
  Transmission Date: 20230721
  Serious: No
  Sender: FDA-Public Use
  Company Number: US-JNJFOC-20230332815

PATIENT
  Age: 52 Year
  Sex: Male
  Weight: 172 kg

DRUGS (3)
  1. STELARA [Suspect]
     Active Substance: USTEKINUMAB
     Indication: Crohn^s disease
     Route: 058
     Dates: start: 20210422
  2. STELARA [Suspect]
     Active Substance: USTEKINUMAB
  3. VITAMINS NOS [Concomitant]
     Active Substance: VITAMINS
     Indication: Hypovitaminosis

REACTIONS (4)
  - Drug ineffective [Unknown]
  - Product use complaint [Unknown]
  - C-reactive protein increased [Unknown]
  - Inflammation [Not Recovered/Not Resolved]
